FAERS Safety Report 4611611-2 (Version None)
Quarter: 2005Q1

REPORT INFORMATION
  Report Type: 
  Country: None (occurrence: None)
  Receive Date: 20050317
  Receipt Date: 20050310
  Transmission Date: 20050727
  Serious: Yes (Other)
  Sender: FDA-Public Use
  Company Number: 001#1#2005-00087

PATIENT

DRUGS (1)
  1. ATMADISC [Suspect]
     Dosage: 300MCG PER DAY

REACTIONS (2)
  - DRUG EXPOSURE DURING PREGNANCY [None]
  - TRISOMY 21 [None]
